FAERS Safety Report 12102289 (Version 2)
Quarter: 2019Q2

REPORT INFORMATION
  Report Type: Spontaneous
  Country: CA (occurrence: CA)
  Receive Date: 20160222
  Receipt Date: 20190529
  Transmission Date: 20190711
  Serious: Yes (Other)
  Sender: FDA-Public Use
  Company Number: CA-PFIZER INC-2016087796

PATIENT
  Age: 85 Year
  Sex: Female

DRUGS (3)
  1. PREGABALIN. [Suspect]
     Active Substance: PREGABALIN
     Dosage: 25 MG, 3X/DAY
     Route: 048
  2. PREGABALIN. [Suspect]
     Active Substance: PREGABALIN
     Indication: SCIATICA
     Dosage: 75 MG, 2X/DAY
     Route: 048
  3. PREGABALIN. [Suspect]
     Active Substance: PREGABALIN
     Dosage: UNK (DOSE WAS INCREASED)
     Route: 048

REACTIONS (6)
  - Fall [Recovering/Resolving]
  - Wrist fracture [Recovering/Resolving]
  - Somnolence [Recovering/Resolving]
  - Hip fracture [Recovering/Resolving]
  - Disturbance in attention [Recovering/Resolving]
  - Dysarthria [Recovering/Resolving]
